FAERS Safety Report 9978962 (Version 1)
Quarter: 2014Q1

REPORT INFORMATION
  Report Type: Report from Study
  Country: US (occurrence: US)
  Receive Date: 20140306
  Receipt Date: 20140306
  Transmission Date: 20141002
  Serious: Yes (Other)
  Sender: FDA-Public Use
  Company Number: US-ABBVIE-13P-163-1173783-00

PATIENT
  Sex: Female
  Weight: 63.56 kg

DRUGS (14)
  1. HUMIRA [Suspect]
     Indication: ARTHRITIS ENTEROPATHIC
     Dates: start: 20130507
  2. SULFASALAZINE [Concomitant]
     Indication: ARTHRITIS ENTEROPATHIC
  3. SULFASALAZINE [Concomitant]
     Indication: ARTHRITIS
  4. METHOTREXATE [Concomitant]
     Indication: ARTHRITIS ENTEROPATHIC
     Route: 058
  5. METHOTREXATE [Concomitant]
     Indication: ARTHRITIS
  6. FOLIC ACID [Concomitant]
     Indication: ARTHRITIS ENTEROPATHIC
  7. VITAMIN D3 [Concomitant]
     Indication: BONE DISORDER
  8. FOSAMAX [Concomitant]
     Indication: OSTEOPOROSIS
  9. MAVIK [Concomitant]
     Indication: HYPERTENSION
  10. MULTIVITAMIN [Concomitant]
     Indication: VITAMIN SUPPLEMENTATION
  11. PROLENSA [Concomitant]
     Indication: EYE INFLAMMATION
     Dates: start: 20131120
  12. PROLENSA [Concomitant]
     Indication: PROPHYLAXIS
  13. DUREZOL [Concomitant]
     Indication: STEROID THERAPY
     Dates: start: 20131120
  14. PREDNISONE [Concomitant]
     Indication: ARTHRITIS

REACTIONS (1)
  - Cataract [Recovering/Resolving]
